FAERS Safety Report 17467956 (Version 1)
Quarter: 2020Q1

REPORT INFORMATION
  Report Type: Spontaneous
  Country: US (occurrence: US)
  Receive Date: 20200214
  Receipt Date: 20200214
  Transmission Date: 20200409
  Serious: No
  Sender: FDA-Public Use
  Company Number: None

PATIENT
  Sex: Female

DRUGS (1)
  1. NINLARO [Suspect]
     Active Substance: IXAZOMIB CITRATE
     Indication: PLASMA CELL MYELOMA
     Dosage: ?          OTHER FREQUENCY:QD ON DAY 1, 8, 15;?
     Route: 048
     Dates: start: 20200129, end: 20200214

REACTIONS (5)
  - Abdominal discomfort [None]
  - Flatulence [None]
  - Abdominal distension [None]
  - Fatigue [None]
  - Pollakiuria [None]
